FAERS Safety Report 8206914-9 (Version None)
Quarter: 2012Q1

REPORT INFORMATION
  Report Type: 
  Country: None (occurrence: None)
  Receive Date: 20120314
  Receipt Date: 20120305
  Transmission Date: 20120608
  Serious: Yes (Other)
  Sender: FDA-Public Use
  Company Number: US-SANOFI-AVENTIS-2012SA011322

PATIENT
  Sex: Female
  Weight: 92.5 kg

DRUGS (11)
  1. POTASSIUM CHLORIDE [Concomitant]
  2. NITROSTAT [Concomitant]
  3. DIOVAN [Concomitant]
     Indication: BLOOD PRESSURE
     Dosage: 2, TABS A DAY, DAILY DOSE= 160MG
     Route: 048
  4. SIMVASTATIN [Concomitant]
     Route: 048
  5. SOLOSTAR [Suspect]
     Indication: DIABETES MELLITUS
     Dates: start: 20110101
  6. LANTUS [Suspect]
     Indication: DIABETES MELLITUS
     Dosage: DOSE:30 UNIT(S)
     Route: 058
     Dates: start: 20110101
  7. ASPIRIN [Concomitant]
     Route: 048
  8. FUROSEMIDE [Concomitant]
     Indication: FLUID RETENTION
     Dosage: 2, 20MG TABLETS DAILY
     Route: 048
  9. TOPROL-XL [Concomitant]
     Indication: BLOOD PRESSURE
     Route: 048
  10. ISOSORBIDE MONONITRATE [Concomitant]
     Dosage: 2 TABLETS PER DAY, TOTAL DAILY DOES OF 120MG
     Route: 048
  11. GLIPIZIDE [Concomitant]

REACTIONS (2)
  - ADVERSE REACTION [None]
  - DEAFNESS [None]
